FAERS Safety Report 17029804 (Version 1)
Quarter: 2019Q4

REPORT INFORMATION
  Report Type: Spontaneous
  Country: BE (occurrence: BE)
  Receive Date: 20191114
  Receipt Date: 20191114
  Transmission Date: 20200122
  Serious: Yes (Other)
  Sender: FDA-Public Use
  Company Number: BE-LUPIN PHARMACEUTICALS INC.-2019-07339

PATIENT
  Age: 56 Year
  Sex: Male

DRUGS (8)
  1. ETHAMBUTOL [Suspect]
     Active Substance: ETHAMBUTOL HYDROCHLORIDE
     Indication: LYMPH NODE TUBERCULOSIS
     Dosage: UNK
     Route: 065
  2. NICOTIBINE [Suspect]
     Active Substance: ISONIAZID
     Indication: PULMONARY TUBERCULOSIS
  3. NICOTIBINE [Suspect]
     Active Substance: ISONIAZID
     Indication: LYMPH NODE TUBERCULOSIS
     Dosage: UNK
     Route: 065
  4. TEBRAZID [Suspect]
     Active Substance: PYRAZINAMIDE
     Indication: LYMPH NODE TUBERCULOSIS
     Dosage: UNK
     Route: 065
  5. TEBRAZID [Suspect]
     Active Substance: PYRAZINAMIDE
     Indication: PULMONARY TUBERCULOSIS
  6. RIFAMPIN. [Suspect]
     Active Substance: RIFAMPIN
     Indication: PULMONARY TUBERCULOSIS
  7. ETHAMBUTOL [Suspect]
     Active Substance: ETHAMBUTOL HYDROCHLORIDE
     Indication: PULMONARY TUBERCULOSIS
  8. RIFAMPIN. [Suspect]
     Active Substance: RIFAMPIN
     Indication: LYMPH NODE TUBERCULOSIS
     Dosage: UNK
     Route: 065

REACTIONS (1)
  - Drug reaction with eosinophilia and systemic symptoms [Unknown]
